FAERS Safety Report 7226723-7 (Version None)
Quarter: 2011Q1

REPORT INFORMATION
  Report Type: 
  Country: None (occurrence: None)
  Receive Date: 20110105
  Receipt Date: 20101221
  Transmission Date: 20110831
  Serious: Yes (Hospitalization)
  Sender: FDA-Public Use
  Company Number: IDA-00474

PATIENT
  Age: 45 Year
  Sex: Male

DRUGS (5)
  1. INDERAL [Suspect]
     Indication: PALPITATIONS
     Dosage: 80 MG
     Dates: start: 20090701
  2. INDERAL [Suspect]
     Indication: ESSENTIAL TREMOR
     Dosage: 80 MG
     Dates: start: 20090701
  3. VIAGRA [Concomitant]
  4. CALCICHEW-D3 (CALCIUM CARBONATE, COLECALCIFEROL) [Concomitant]
  5. PREDNISOLONE [Concomitant]

REACTIONS (5)
  - LUNG TRANSPLANT [None]
  - BRONCHIECTASIS [None]
  - PULMONARY FIBROSIS [None]
  - CANDIDIASIS [None]
  - STAPHYLOCOCCAL INFECTION [None]
